FAERS Safety Report 6141698-X (Version None)
Quarter: 2009Q1

REPORT INFORMATION
  Report Type: 
  Country: None (occurrence: None)
  Receive Date: 20090331
  Receipt Date: 20090331
  Transmission Date: 20090719
  Serious: Yes (Disabling)
  Sender: FDA-Public Use
  Company Number: None

PATIENT
  Age: 38 Year
  Sex: Male
  Weight: 79.3795 kg

DRUGS (3)
  1. LEVAQUIN [Suspect]
     Indication: PNEUMONIA
     Dosage: 750MG 10DAYS PO
     Route: 048
     Dates: start: 20061213, end: 20061223
  2. LEVAQUIN [Suspect]
     Indication: TESTICULAR PAIN
     Dosage: 500MG 21DAYSX2PO
     Route: 048
     Dates: start: 20070912, end: 20071025
  3. LEVAQUIN [Suspect]
     Indication: URINARY TRACT PAIN
     Dosage: 500MG 21DAYSX2PO
     Route: 048
     Dates: start: 20070912, end: 20071025

REACTIONS (2)
  - TENDON PAIN [None]
  - TENDON RUPTURE [None]
